FAERS Safety Report 24712021 (Version 1)
Quarter: 2024Q4

REPORT INFORMATION
  Report Type: Spontaneous
  Country: FR (occurrence: FR)
  Receive Date: 20241209
  Receipt Date: 20241209
  Transmission Date: 20250115
  Serious: Yes (Death, Life-Threatening, Hospitalization)
  Sender: NOVARTIS
  Company Number: None

PATIENT
  Sex: Male

DRUGS (1)
  1. ZOMETA [Suspect]
     Active Substance: ZOLEDRONIC ACID
     Indication: Hypercalcaemia of malignancy
     Dosage: 1 DOSAGE FORM (1 TOTAL)
     Route: 065
     Dates: start: 20240803, end: 20240803

REACTIONS (4)
  - Product dose omission in error [Fatal]
  - Product prescribing issue [Fatal]
  - Product dispensing issue [Fatal]
  - Drug monitoring procedure not performed [Fatal]

NARRATIVE: CASE EVENT DATE: 20240803
